FAERS Safety Report 9014541 (Version 8)
Quarter: 2013Q4

REPORT INFORMATION
  Report Type: Report from Study
  Country: US (occurrence: US)
  Receive Date: 20130115
  Receipt Date: 20131113
  Transmission Date: 20140711
  Serious: Yes (Life-Threatening, Hospitalization, Other)
  Sender: FDA-Public Use
  Company Number: US-ACTELION-A-US2012-77134

PATIENT
  Age: 50 Year
  Sex: Male

DRUGS (13)
  1. TRACLEER [Suspect]
     Indication: PULMONARY ARTERIAL HYPERTENSION
     Dosage: 125 MG, BID
     Route: 048
     Dates: start: 200705
  2. HUMALOG [Concomitant]
     Dosage: 38 , UNK
  3. LABETALOL HCL [Concomitant]
     Dosage: 800 MG, BID
  4. TORSEMIDE [Concomitant]
     Dosage: UNK
     Dates: start: 2012, end: 2013
  5. VYTORIN [Concomitant]
     Dosage: 10/40 HALF TABLET DAILY
     Dates: start: 2012
  6. COLCRYS [Concomitant]
     Dosage: 0.6 MG, QOD
     Dates: start: 2012
  7. LOSARTAN [Concomitant]
     Dosage: 25 MG, QD
     Dates: start: 201308
  8. VITAMIN D [Concomitant]
     Dosage: 50000 U, WEEKLY
     Dates: start: 201308
  9. MULTIVITAMIN [Concomitant]
     Dosage: UNK
     Dates: start: 2012
  10. CALCIUM [Concomitant]
     Dosage: 500 MG, BID
  11. ASPIRIN [Concomitant]
     Dosage: 81 MG, QD
     Dates: start: 2012
  12. SYMBICORT [Concomitant]
     Dosage: 1 PUFF, BID
     Dates: start: 201308
  13. SPIRIVA [Concomitant]
     Dosage: 1 PUFF, QD
     Dates: start: 201308

REACTIONS (16)
  - Retching [Recovered/Resolved]
  - Insomnia [Recovered/Resolved]
  - Decreased appetite [Recovering/Resolving]
  - Dyspnoea [Unknown]
  - Fluid retention [Recovered/Resolved]
  - Condition aggravated [Recovered/Resolved]
  - Chronic obstructive pulmonary disease [Recovered/Resolved]
  - Cardiac failure congestive [Recovered/Resolved]
  - Pleural effusion [Recovered/Resolved]
  - Pneumonia [Recovered/Resolved]
  - Cough [Recovered/Resolved]
  - Blood pressure abnormal [Unknown]
  - Blood cholesterol increased [Unknown]
  - Gout [Unknown]
  - Arthralgia [Unknown]
  - Wheezing [Unknown]
